FAERS Safety Report 7684000-4 (Version None)
Quarter: 2011Q3

REPORT INFORMATION
  Report Type: 
  Country: None (occurrence: None)
  Receive Date: 20110815
  Receipt Date: 20110804
  Transmission Date: 20111222
  Serious: No
  Sender: FDA-Public Use
  Company Number: CA-JNJFOC-20110504935

PATIENT
  Sex: Female
  Weight: 45 kg

DRUGS (1)
  1. REMICADE [Suspect]
     Indication: CROHN'S DISEASE
     Route: 042

REACTIONS (5)
  - OROPHARYNGEAL PAIN [None]
  - EAR PAIN [None]
  - RHINORRHOEA [None]
  - INCREASED UPPER AIRWAY SECRETION [None]
  - MATERNAL EXPOSURE DURING PREGNANCY [None]
